FAERS Safety Report 7646789-X (Version None)
Quarter: 2011Q3

REPORT INFORMATION
  Report Type: 
  Country: None (occurrence: None)
  Receive Date: 20110801
  Receipt Date: 20110727
  Transmission Date: 20111222
  Serious: Yes (Other)
  Sender: FDA-Public Use
  Company Number: US-BAYER-2011-065621

PATIENT
  Age: 8 Year
  Sex: Male
  Weight: 33.1 kg

DRUGS (2)
  1. ANTIHEMOPHILIC FACTOR (RECOMBINANT), SUCROSE FORMULATED FS [Suspect]
     Indication: FACTOR VIII DEFICIENCY
     Dosage: 40 IU/KG, QOD
  2. ANTIHEMOPHILIC FACTOR (RECOMBINANT), SUCROSE FORMULATED FS [Suspect]
     Dosage: 60 IU/KG, QOD

REACTIONS (2)
  - HAEMORRHAGIC DIATHESIS [None]
  - THERAPEUTIC RESPONSE DECREASED [None]
